FAERS Safety Report 9994009 (Version 2)
Quarter: 2014Q1

REPORT INFORMATION
  Report Type: Spontaneous
  Country: US (occurrence: US)
  Receive Date: 20140310
  Receipt Date: 20140310
  Transmission Date: 20141002
  Serious: Yes (Hospitalization)
  Sender: FDA-Public Use
  Company Number: US-AMGEN-USASP2013064278

PATIENT
  Age: 70 Year
  Sex: Female
  Weight: 65.5 kg

DRUGS (10)
  1. SENSIPAR [Suspect]
     Indication: HYPERPARATHYROIDISM SECONDARY
     Dosage: 30 MG, QD
     Route: 048
     Dates: start: 20130404, end: 20130827
  2. DIALYVITE [Concomitant]
     Indication: RENAL FAILURE CHRONIC
     Dosage: UNK UNK, QD
     Route: 048
  3. FENOFIBRATE [Concomitant]
     Indication: HYPERLIPIDAEMIA
     Dosage: 134 MG, QD
     Route: 048
  4. FLECAINIDE [Concomitant]
     Indication: ARRHYTHMIA
     Dosage: 50 MG, BID
     Route: 048
  5. LEXAPRO [Concomitant]
     Indication: DEPRESSION
     Dosage: 10 MG, QD
     Route: 048
  6. LISINOPRIL [Concomitant]
     Indication: HYPERTENSION
     Dosage: 20 MG, QD
     Route: 048
  7. NORVASC [Concomitant]
     Dosage: 10 MG, QD
     Route: 048
  8. PRILOSEC                           /00661201/ [Concomitant]
     Dosage: 20 MG, QD
     Route: 048
  9. PROPRANOLOL [Concomitant]
     Dosage: UNK UNK, BID
  10. RENVELA [Concomitant]
     Dosage: 800 MG, UNK

REACTIONS (2)
  - Convulsion [Recovered/Resolved]
  - Blood calcium decreased [Recovered/Resolved]
